FAERS Safety Report 19808562 (Version 1)
Quarter: 2021Q3

REPORT INFORMATION
  Report Type: Report from Study
  Country: US (occurrence: US)
  Receive Date: 20210909
  Receipt Date: 20210909
  Transmission Date: 20211014
  Serious: Yes (Hospitalization, Other)
  Sender: FDA-Public Use
  Company Number: NVSC2021US198921

PATIENT
  Age: 72 Year
  Sex: Female
  Weight: 58.05 kg

DRUGS (4)
  1. LORATADINE. [Concomitant]
     Active Substance: LORATADINE
     Indication: RASH
     Dosage: UNK
     Route: 065
     Dates: start: 20210726
  2. MEDROL [Concomitant]
     Active Substance: METHYLPREDNISOLONE
     Indication: RASH
     Dosage: UNK
     Route: 065
     Dates: start: 20210807
  3. DEXAMETHASONE. [Concomitant]
     Active Substance: DEXAMETHASONE
     Indication: STOMATITIS
     Dosage: UNK
     Route: 065
     Dates: start: 20210727
  4. PIQRAY [Suspect]
     Active Substance: ALPELISIB
     Indication: BREAST CANCER
     Dosage: 300 MG, QD
     Route: 048
     Dates: end: 20210814

REACTIONS (6)
  - Hypotension [Recovered/Resolved]
  - Hypoxia [Recovered/Resolved]
  - Leukocytosis [Recovered/Resolved]
  - Pyrexia [Recovered/Resolved]
  - Malaise [Unknown]
  - Chills [Unknown]

NARRATIVE: CASE EVENT DATE: 20210814
